FAERS Safety Report 9543649 (Version 2)
Quarter: 2013Q4

REPORT INFORMATION
  Report Type: Spontaneous
  Country: DE (occurrence: DE)
  Receive Date: 20130923
  Receipt Date: 20131219
  Transmission Date: 20140711
  Serious: Yes (Other)
  Sender: FDA-Public Use
  Company Number: DE-BRISTOL-MYERS SQUIBB COMPANY-19430255

PATIENT
  Age: 56 Year
  Sex: Female

DRUGS (1)
  1. ELIQUIS [Suspect]
     Indication: ATRIAL FIBRILLATION
     Dosage: TABS?5 MG TABLET TWICE DAILY IN THE MORNINGS AND EVENINGS.?10 MG DAILY
     Route: 048

REACTIONS (2)
  - Neoplasm malignant [Unknown]
  - Pulmonary embolism [Unknown]
